FAERS Safety Report 21387077 (Version 2)
Quarter: 2022Q4

REPORT INFORMATION
  Report Type: Spontaneous
  Country: US (occurrence: US)
  Receive Date: 20220928
  Receipt Date: 20221019
  Transmission Date: 20230113
  Serious: Yes (Hospitalization, Other)
  Sender: FDA-Public Use
  Company Number: US-PFIZER INC-PV202200071187

PATIENT
  Age: 72 Year
  Sex: Male
  Weight: 69.85 kg

DRUGS (2)
  1. LATANOPROST [Suspect]
     Active Substance: LATANOPROST
     Indication: Intraocular pressure increased
     Dosage: 1 DROP, QD ( ONE DROP DAILY)
     Route: 065
     Dates: start: 2015
  2. LATANOPROST [Suspect]
     Active Substance: LATANOPROST
     Indication: Glaucoma
     Dosage: 2 DROP (ONE DROP IN EACH EYE)
     Route: 065
     Dates: start: 2016

REACTIONS (1)
  - Uveal melanoma [Not Recovered/Not Resolved]

NARRATIVE: CASE EVENT DATE: 20210602
